FAERS Safety Report 17935066 (Version 1)
Quarter: 2020Q2

REPORT INFORMATION
  Report Type: Spontaneous
  Country: IT (occurrence: IT)
  Receive Date: 20200624
  Receipt Date: 20200624
  Transmission Date: 20200714
  Serious: Yes (Other)
  Sender: FDA-Public Use
  Company Number: IT-PFIZER INC-2020236014

PATIENT
  Age: 29 Year
  Sex: Female

DRUGS (20)
  1. ELTROMBOPAG [Concomitant]
     Active Substance: ELTROMBOPAG
     Indication: IMMUNE THROMBOCYTOPENIA
     Dosage: 50 MG, 1X/DAY
     Route: 065
  2. ELTROMBOPAG [Concomitant]
     Active Substance: ELTROMBOPAG
     Dosage: UNK (BETWEEN SEPTEMBER-DECEMBER 2017 AT UNKNOWN DOSE)
     Dates: start: 2017
  3. DEXAMETHASONE. [Concomitant]
     Active Substance: DEXAMETHASONE
     Dosage: 40 MG/KG (FOUR COURSES)
  4. MYCOPHENOLATE MOFETIL. [Concomitant]
     Active Substance: MYCOPHENOLATE MOFETIL
     Indication: IMMUNE THROMBOCYTOPENIA
     Dosage: 1 G, 1X/DAY
     Route: 065
  5. SOFOSBUVIR [Concomitant]
     Active Substance: SOFOSBUVIR
     Indication: HEPATITIS C
     Dosage: UNK
     Route: 065
  6. PREDNISONE. [Suspect]
     Active Substance: PREDNISONE
     Dosage: UNK
     Dates: start: 201703
  7. CYCLOPHOSPHAMIDE. [Suspect]
     Active Substance: CYCLOPHOSPHAMIDE
     Indication: IMMUNE THROMBOCYTOPENIA
     Dosage: 1267.5 MG, EVERY 3 WEEKS
     Route: 065
  8. MYCOPHENOLATE MOFETIL. [Concomitant]
     Active Substance: MYCOPHENOLATE MOFETIL
     Dosage: 3 G, 1X/DAY
  9. PREDNISONE. [Suspect]
     Active Substance: PREDNISONE
     Dosage: UNK (ADMINISTERED DURING PREGNANCY AT AN UNSPECIFIED DOSE)
  10. DEXAMETHASONE. [Concomitant]
     Active Substance: DEXAMETHASONE
     Dosage: 40 MG/KG
     Dates: start: 2017
  11. PREDNISONE. [Suspect]
     Active Substance: PREDNISONE
     Indication: IMMUNE THROMBOCYTOPENIA
     Dosage: UNK
     Route: 065
     Dates: start: 201611
  12. PREDNISONE. [Suspect]
     Active Substance: PREDNISONE
     Dosage: 68 MG, EVERY 3 WEEKS (ADMINISTERED WITH CVP CHEMOTHERAPY)
  13. ROMIPLOSTIM [Concomitant]
     Active Substance: ROMIPLOSTIM
     Indication: IMMUNE THROMBOCYTOPENIA
     Dosage: 10 UG, WEEKLY (ADMINISTERED DURING PREGNANCY)
     Route: 065
  14. VINCRISTINE SULFATE. [Suspect]
     Active Substance: VINCRISTINE SULFATE
     Indication: IMMUNE THROMBOCYTOPENIA
     Dosage: 2.37 MG, EVERY 3 WEEKS
     Route: 065
  15. LEDIPASVIR [Concomitant]
     Active Substance: LEDIPASVIR
     Indication: HEPATITIS C
     Dosage: UNK
     Route: 065
  16. ROMIPLOSTIM [Concomitant]
     Active Substance: ROMIPLOSTIM
     Dosage: 1 UG, WEEKLY (ADMINISTERED DURING PREGNANCY)
  17. CYCLOPHOSPHAMIDE. [Suspect]
     Active Substance: CYCLOPHOSPHAMIDE
     Dosage: 700 MG/M2
     Dates: start: 2017
  18. ELTROMBOPAG [Concomitant]
     Active Substance: ELTROMBOPAG
     Dosage: UNK
     Dates: start: 201703
  19. CYCLOSPORINE A [Concomitant]
     Active Substance: CYCLOSPORINE
     Dosage: UNK (50 MG X 2 UP TO 100 MG X 2 DAILY)
     Route: 065
  20. DEXAMETHASONE. [Concomitant]
     Active Substance: DEXAMETHASONE
     Indication: IMMUNE THROMBOCYTOPENIA
     Dosage: 40 MG/KG (FOUR COURSES)
     Route: 065
     Dates: start: 2017

REACTIONS (6)
  - Treatment failure [Unknown]
  - Epistaxis [Unknown]
  - Petechiae [Unknown]
  - Normal newborn [Recovered/Resolved]
  - Gingival bleeding [Unknown]
  - Exposure during pregnancy [Recovered/Resolved]
